FAERS Safety Report 4982628-3 (Version None)
Quarter: 2006Q2

REPORT INFORMATION
  Report Type: 
  Country: None (occurrence: None)
  Receive Date: 20060419
  Receipt Date: 20060408
  Transmission Date: 20061013
  Serious: Yes (Other)
  Sender: FDA-Public Use
  Company Number: 2006035885

PATIENT
  Age: 44 Year
  Sex: Female
  Weight: 49.8957 kg

DRUGS (5)
  1. ZYRTEC [Suspect]
     Indication: MULTIPLE ALLERGIES
     Dosage: 10 MG (10  MG, 1 IN 1 D), ORAL
     Route: 048
  2. ZYRTEC [Suspect]
     Indication: RHINITIS ALLERGIC
     Dosage: 10 MG (10  MG, 1 IN 1 D), ORAL
     Route: 048
  3. ADVAIR DISKUS 100/50 [Concomitant]
  4. NASONEX [Concomitant]
  5. VITAMINS (VITAMINS) [Concomitant]

REACTIONS (12)
  - ABDOMINAL PAIN [None]
  - DISEASE RECURRENCE [None]
  - DIVERTICULITIS [None]
  - FATIGUE [None]
  - NEPHROLITHIASIS [None]
  - PAIN [None]
  - RHEUMATOID ARTHRITIS [None]
  - ROSACEA [None]
  - THERAPEUTIC RESPONSE UNEXPECTED [None]
  - TREATMENT NONCOMPLIANCE [None]
  - URTICARIA [None]
  - WEIGHT INCREASED [None]
